FAERS Safety Report 19141803 (Version 2)
Quarter: 2021Q2

REPORT INFORMATION
  Report Type: Report from Study
  Country: CA (occurrence: CA)
  Receive Date: 20210415
  Receipt Date: 20210524
  Transmission Date: 20210717
  Serious: Yes (Death, Hospitalization)
  Sender: FDA-Public Use
  Company Number: CA-EXELIXIS-CABO-21036533

PATIENT
  Age: 70 Year
  Sex: Male

DRUGS (3)
  1. LASIX [Concomitant]
     Active Substance: FUROSEMIDE
     Dosage: UNK
  2. CABOMETYX [Suspect]
     Active Substance: CABOZANTINIB S-MALATE
     Dosage: 40 MG, QD
     Route: 048
     Dates: start: 20210312, end: 20210407
  3. CABOMETYX [Suspect]
     Active Substance: CABOZANTINIB S-MALATE
     Indication: RENAL CELL CARCINOMA
     Dosage: 40 MG, QD
     Route: 048
     Dates: start: 20200110, end: 20201209

REACTIONS (5)
  - Fall [Unknown]
  - Failure to thrive [Unknown]
  - Death [Fatal]
  - Treatment noncompliance [Unknown]
  - Intentional product misuse [Unknown]

NARRATIVE: CASE EVENT DATE: 20210504
